FAERS Safety Report 7723056-7 (Version None)
Quarter: 2011Q3

REPORT INFORMATION
  Report Type: 
  Country: None (occurrence: None)
  Receive Date: 20110826
  Receipt Date: 20110816
  Transmission Date: 20111222
  Serious: Yes (Hospitalization)
  Sender: FDA-Public Use
  Company Number: GRT 2011-13641

PATIENT
  Age: 81 Year
  Sex: Female

DRUGS (5)
  1. LIDODERM [Suspect]
     Indication: POST HERPETIC NEURALGIA
     Dates: start: 20110509
  2. ATRVASTATINE (ATROVASTATIN CALCIUM) [Concomitant]
  3. ACETAMINOPHEN [Concomitant]
  4. OMEPRAZOLE [Concomitant]
  5. SALIDUR (FUROSEMIDE XANTINOL, TRIAMTERENE) [Concomitant]

REACTIONS (3)
  - PRESYNCOPE [None]
  - ANGINA PECTORIS [None]
  - MALAISE [None]
